FAERS Safety Report 22945622 (Version 9)
Quarter: 2025Q1

REPORT INFORMATION
  Report Type: Report from Study
  Country: CO (occurrence: CO)
  Receive Date: 20230914
  Receipt Date: 20250311
  Transmission Date: 20250408
  Serious: Yes (Hospitalization, Other)
  Sender: BIOGEN
  Company Number: CO-BIOGEN-2023BI01195992

PATIENT
  Sex: Male
  Weight: 20 kg

DRUGS (8)
  1. SPINRAZA [Suspect]
     Active Substance: NUSINERSEN
     Indication: Spinal muscular atrophy
     Dosage: MAINTENANCE DOSE
     Route: 050
     Dates: start: 20200204
  2. SALMETEROL [Concomitant]
     Active Substance: SALMETEROL
     Indication: Respiratory disorder
     Dosage: 2 PUFFS
     Route: 050
     Dates: start: 2019
  3. SALMETEROL [Concomitant]
     Active Substance: SALMETEROL
     Dosage: 2 PUFFS EVERY 12 HOURS?25/125 MG
     Route: 050
     Dates: start: 202205
  4. SALMETEROL [Concomitant]
     Active Substance: SALMETEROL
     Route: 050
     Dates: start: 2021
  5. MONTELUKAST [Concomitant]
     Active Substance: MONTELUKAST
     Indication: Asthma
     Route: 050
     Dates: start: 2019
  6. MONTELUKAST [Concomitant]
     Active Substance: MONTELUKAST
     Route: 050
     Dates: start: 202403
  7. MONTELUKAST [Concomitant]
     Active Substance: MONTELUKAST
     Route: 050
     Dates: start: 2019
  8. MONTELUKAST [Concomitant]
     Active Substance: MONTELUKAST
     Route: 050
     Dates: start: 2021

REACTIONS (16)
  - Gastrointestinal haemorrhage [Not Recovered/Not Resolved]
  - Scoliosis [Not Recovered/Not Resolved]
  - Stomach mass [Recovered/Resolved]
  - Constipation [Not Recovered/Not Resolved]
  - Pneumonia [Recovered/Resolved]
  - Atelectasis [Recovered/Resolved]
  - Osteopenia [Not Recovered/Not Resolved]
  - Muscle disorder [Not Recovered/Not Resolved]
  - Pain in extremity [Not Recovered/Not Resolved]
  - Hypoaesthesia [Not Recovered/Not Resolved]
  - Vitamin D deficiency [Not Recovered/Not Resolved]
  - Physical examination abnormal [Not Recovered/Not Resolved]
  - Underweight [Not Recovered/Not Resolved]
  - Orchidopexy [Recovered/Resolved]
  - Incision site pain [Not Recovered/Not Resolved]
  - Fatigue [Not Recovered/Not Resolved]

NARRATIVE: CASE EVENT DATE: 20220101
